FAERS Safety Report 14439863 (Version 3)
Quarter: 2018Q1

REPORT INFORMATION
  Report Type: Spontaneous
  Country: US (occurrence: US)
  Receive Date: 20180125
  Receipt Date: 20180129
  Transmission Date: 20180509
  Serious: No
  Sender: FDA-Public Use
  Company Number: US-BAYER-2018-015856

PATIENT
  Age: 78 Year
  Sex: Female
  Weight: 94.97 kg

DRUGS (11)
  1. AMBRIL [Concomitant]
     Dosage: UNK
  2. MEDROXYPROGESTERONE [Concomitant]
     Active Substance: MEDROXYPROGESTERONE
     Dosage: UNK
  3. CLARITIN [Suspect]
     Active Substance: LORATADINE
     Indication: HYPERSENSITIVITY
     Dosage: 1 DF, BID
     Route: 048
     Dates: start: 20180123
  4. ASPIRIN [ACETYLSALICYLIC ACID] [Concomitant]
     Active Substance: ASPIRIN
     Dosage: UNK
  5. CENTRUM SILVER [Concomitant]
     Active Substance: MINERALS\VITAMINS
     Dosage: UNK
  6. MAGNESIUM [Concomitant]
     Active Substance: MAGNESIUM
     Dosage: UNK
  7. CASTOR OIL. [Concomitant]
     Active Substance: CASTOR OIL
     Dosage: UNK
  8. CLARITIN [Suspect]
     Active Substance: LORATADINE
     Indication: NASOPHARYNGITIS
  9. LASIX [Concomitant]
     Active Substance: FUROSEMIDE
  10. POTASSIUM [POTASSIUM] [Concomitant]
     Active Substance: POTASSIUM
     Dosage: UNK
  11. WATER [WATER] [Concomitant]
     Dosage: UNK

REACTIONS (1)
  - Extra dose administered [Unknown]

NARRATIVE: CASE EVENT DATE: 20180124
